FAERS Safety Report 9885965 (Version 1)
Quarter: 2013Q4

REPORT INFORMATION
  Report Type: Spontaneous
  Country: US (occurrence: None)
  Receive Date: 20131223
  Receipt Date: 20131223
  Transmission Date: 20140711
  Serious: Yes (Other)
  Sender: FDA-Public Use
  Company Number: 221491LEO

PATIENT
  Age: 67 Year
  Sex: Male

DRUGS (3)
  1. PICATO (0.015 %, GEL) [Suspect]
     Indication: ACTINIC KERATOSIS
     Dosage: ABOUT SEP/OCT2012 COMPLETED 3 DAYS; 2 MONTHS AFTER FIRRST USE IN SEP/OCT
     Route: 061
  2. PICATO (0.015 %, GEL) [Suspect]
     Dosage: ABOUT SEP/OCT2012 COMPLETED 3 DAYS; 2 MONTHS AFTER FIRRST USE IN SEP/OCT
     Route: 061
  3. PICATO (0.015 %, GEL) [Suspect]
     Dosage: ABOUT SEP/OCT2012 COMPLETED 3 DAYS; 2 MONTHS AFTER FIRRST USE IN SEP/OCT
     Route: 061

REACTIONS (4)
  - Application site pain [None]
  - Drug ineffective [None]
  - Drug administered at inappropriate site [None]
  - Inappropriate schedule of drug administration [None]
